FAERS Safety Report 9527071 (Version 2)
Quarter: 2013Q4

REPORT INFORMATION
  Report Type: Report from Study
  Country: US (occurrence: US)
  Receive Date: 20130916
  Receipt Date: 20131118
  Transmission Date: 20140711
  Serious: Yes (Hospitalization, Other)
  Sender: FDA-Public Use
  Company Number: US-ABBVIE-13P-163-1144992-00

PATIENT
  Age: 40 Year
  Sex: Male
  Weight: 67.19 kg

DRUGS (11)
  1. HUMIRA [Suspect]
     Indication: CROHN^S DISEASE
     Route: 058
     Dates: start: 201106, end: 201106
  2. HUMIRA [Suspect]
     Route: 058
     Dates: start: 201106, end: 201106
  3. HUMIRA [Suspect]
     Route: 058
     Dates: start: 201107, end: 201210
  4. ATENOLOL [Concomitant]
     Indication: HYPERTENSION
  5. FUROSEMIDE [Concomitant]
     Indication: PROPHYLAXIS
  6. FUROSEMIDE [Concomitant]
     Indication: SWELLING
  7. SPIRONOLACTONE [Concomitant]
     Indication: PROPHYLAXIS
  8. SPIRONOLACTONE [Concomitant]
     Indication: SWELLING
  9. OMEPRAZOLE [Concomitant]
     Indication: PRODUCT USED FOR UNKNOWN INDICATION
  10. LEVOTHYROXINE SODIUM [Concomitant]
     Indication: HORMONE REPLACEMENT THERAPY
  11. BENADRYL [Concomitant]
     Indication: PRODUCT USED FOR UNKNOWN INDICATION

REACTIONS (12)
  - Asthenia [Recovered/Resolved]
  - Loss of consciousness [Recovered/Resolved]
  - Hyperthyroidism [Recovered/Resolved]
  - Portal vein thrombosis [Not Recovered/Not Resolved]
  - Lung neoplasm malignant [Not Recovered/Not Resolved]
  - Hepatic cancer [Not Recovered/Not Resolved]
  - Rectal haemorrhage [Recovered/Resolved]
  - Asthenia [Recovered/Resolved]
  - Rectal haemorrhage [Recovered/Resolved]
  - Abdominal pain [Recovered/Resolved]
  - Rectal haemorrhage [Recovered/Resolved]
  - Thyroid cancer [Not Recovered/Not Resolved]
